FAERS Safety Report 6254100-4 (Version None)
Quarter: 2009Q3

REPORT INFORMATION
  Report Type: 
  Country: None (occurrence: None)
  Receive Date: 20090702
  Receipt Date: 20090625
  Transmission Date: 20100115
  Serious: Yes (Other)
  Sender: FDA-Public Use
  Company Number: PHEH2009US02397

PATIENT
  Sex: Male
  Weight: 46.5 kg

DRUGS (5)
  1. EXJADE [Suspect]
     Indication: IRON OVERLOAD
     Dosage: 125 MG, 7QD
     Dates: start: 20081223, end: 20090223
  2. SYNTHROID [Concomitant]
     Indication: HYPOTHYROIDISM
     Dosage: 75 MCG Q DAY
     Route: 048
  3. PEN-VEE K [Concomitant]
  4. ALDACTONE [Concomitant]
     Indication: ASCITES
     Dosage: 25 MG, BID
     Route: 048
  5. LASIX [Concomitant]
     Dosage: 20 MG, QD
     Route: 048

REACTIONS (13)
  - ABDOMINAL DISTENSION [None]
  - ABDOMINAL PAIN UPPER [None]
  - ALANINE AMINOTRANSFERASE INCREASED [None]
  - ASCITES [None]
  - ASPARTATE AMINOTRANSFERASE INCREASED [None]
  - BIOPSY LIVER ABNORMAL [None]
  - BLOOD ALKALINE PHOSPHATASE INCREASED [None]
  - DECREASED APPETITE [None]
  - FATIGUE [None]
  - IRON OVERLOAD [None]
  - NAUSEA [None]
  - PARACENTESIS [None]
  - PORTAL HYPERTENSION [None]
